FAERS Safety Report 5191226-0 (Version None)
Quarter: 2006Q4

REPORT INFORMATION
  Report Type: 
  Country: None (occurrence: None)
  Receive Date: 20061226
  Receipt Date: 20061213
  Transmission Date: 20070319
  Serious: Yes (Other)
  Sender: FDA-Public Use
  Company Number: LB-AVENTIS-200622817GDDC

PATIENT
  Age: 70 Year
  Sex: Female

DRUGS (5)
  1. LANTUS [Suspect]
     Indication: DIABETES MELLITUS NON-INSULIN-DEPENDENT
     Route: 058
  2. AMARYL [Concomitant]
     Indication: DIABETES MELLITUS
  3. URISPAS [Concomitant]
  4. DITROPAN [Concomitant]
  5. DEANXIT                            /00428501/ [Concomitant]

REACTIONS (6)
  - ABSCESS [None]
  - INJECTION SITE ERYTHEMA [None]
  - INJECTION SITE IRRITATION [None]
  - INJECTION SITE PAIN [None]
  - INJECTION SITE REACTION [None]
  - NECROSIS [None]
